FAERS Safety Report 16290244 (Version 1)
Quarter: 2019Q2

REPORT INFORMATION
  Report Type: Spontaneous
  Country: NL (occurrence: NL)
  Receive Date: 20190509
  Receipt Date: 20190509
  Transmission Date: 20190711
  Serious: Yes (Other)
  Sender: FDA-Public Use
  Company Number: NL-ACCORD-125990

PATIENT
  Age: 63 Year
  Sex: Female

DRUGS (1)
  1. INJEXATE [Suspect]
     Active Substance: METHOTREXATE SODIUM
     Indication: RHEUMATIC DISORDER
     Dosage: STRENGTH: 25 MG/WWSP 0.5 ML
     Route: 051
     Dates: start: 20190308

REACTIONS (4)
  - Needle issue [Unknown]
  - Product packaging difficult to open [Unknown]
  - Injection site pain [Unknown]
  - Syringe issue [Unknown]
